FAERS Safety Report 17314971 (Version 1)
Quarter: 2020Q1

REPORT INFORMATION
  Report Type: Spontaneous
  Country: US (occurrence: US)
  Receive Date: 20200124
  Receipt Date: 20200124
  Transmission Date: 20200409
  Serious: No
  Sender: FDA-Public Use
  Company Number: US-PCCINC-2019-PEL-000369

PATIENT

DRUGS (2)
  1. GABLOFEN [Suspect]
     Active Substance: BACLOFEN
     Indication: PAIN
     Dosage: 500 MICROGRAM, PER DAY
     Route: 037
     Dates: start: 20190923
  2. GABLOFEN [Suspect]
     Active Substance: BACLOFEN
     Dosage: 350 MICROGRAM, PER DAY
     Route: 037

REACTIONS (2)
  - Mental status changes [Not Recovered/Not Resolved]
  - Off label use [Unknown]
